FAERS Safety Report 12525930 (Version 1)
Quarter: 2016Q3

REPORT INFORMATION
  Report Type: Spontaneous
  Country: JP (occurrence: JP)
  Receive Date: 20160705
  Receipt Date: 20160705
  Transmission Date: 20161109
  Serious: Yes (Other)
  Sender: FDA-Public Use
  Company Number: JP-PFIZER INC-2016299142

PATIENT
  Age: 66 Year
  Sex: Female

DRUGS (2)
  1. SELTOUCH [Concomitant]
     Active Substance: FELBINAC
     Dosage: EXTRA FORMULATION, 140 MG
     Dates: start: 20160606
  2. CELECOX [Suspect]
     Active Substance: CELECOXIB
     Indication: BACK PAIN
     Dosage: 100 MG, 2X/DAY
     Route: 048
     Dates: start: 20160606, end: 20160607

REACTIONS (1)
  - Erythema [Recovered/Resolved]

NARRATIVE: CASE EVENT DATE: 20160606
